FAERS Safety Report 7730220-X (Version None)
Quarter: 2011Q3

REPORT INFORMATION
  Report Type: 
  Country: None (occurrence: None)
  Receive Date: 20110906
  Receipt Date: 20110901
  Transmission Date: 20111222
  Serious: Yes (Hospitalization)
  Sender: FDA-Public Use
  Company Number: PHHO2011US13968

PATIENT
  Sex: Female
  Weight: 114.74 kg

DRUGS (4)
  1. CAPECITABINE [Concomitant]
     Indication: NEOPLASM MALIGNANT
     Dosage: 500 MG, BID
     Route: 048
     Dates: start: 20110111, end: 20110805
  2. ZOMETA [Suspect]
     Indication: BREAST CANCER METASTATIC
     Dosage: 4 MG, UNK
     Route: 042
     Dates: start: 20110111
  3. CALCIUM CARBONATE [Concomitant]
  4. VITAMIN D [Concomitant]

REACTIONS (2)
  - OSTEOMYELITIS [None]
  - EXTRADURAL ABSCESS [None]
